FAERS Safety Report 20480366 (Version 1)
Quarter: 2022Q1

REPORT INFORMATION
  Report Type: Spontaneous
  Country: US (occurrence: None)
  Receive Date: 20220216
  Receipt Date: 20220216
  Transmission Date: 20220423
  Serious: Yes (Other)
  Sender: FDA-Public Use
  Company Number: 2022A064679

PATIENT
  Sex: Female
  Weight: 46.3 kg

DRUGS (4)
  1. LYNPARZA [Suspect]
     Active Substance: OLAPARIB
     Indication: Ovarian cancer
     Dosage: 400.0MG UNKNOWN
     Route: 048
     Dates: start: 2020
  2. LYNPARZA [Suspect]
     Active Substance: OLAPARIB
     Indication: Ovarian cancer
     Dosage: 600.0MG UNKNOWN
     Route: 048
  3. AVASTIN [Concomitant]
     Active Substance: BEVACIZUMAB
  4. CARBOPLATIN [Concomitant]
     Active Substance: CARBOPLATIN

REACTIONS (3)
  - Ovarian cancer recurrent [Unknown]
  - Carbohydrate antigen 125 increased [Unknown]
  - Platelet count increased [Unknown]
